FAERS Safety Report 6511773-6 (Version None)
Quarter: 2009Q4

REPORT INFORMATION
  Report Type: 
  Country: None (occurrence: None)
  Receive Date: 20091222
  Receipt Date: 20090407
  Transmission Date: 20100525
  Serious: No
  Sender: FDA-Public Use
  Company Number: US-ASTRAZENECA-2009UW08714

PATIENT
  Age: 85 Year
  Sex: Female
  Weight: 68 kg

DRUGS (11)
  1. CRESTOR [Suspect]
     Indication: BLOOD CHOLESTEROL INCREASED
     Route: 048
     Dates: start: 20080601, end: 20090404
  2. WELCHOL [Concomitant]
  3. ASPIRIN [Concomitant]
  4. BUSPAR [Concomitant]
  5. LEVOTHYROXINE SODIUM [Concomitant]
  6. DIOVAN [Concomitant]
  7. XANAX [Concomitant]
  8. PROTONIX [Concomitant]
  9. SINGULAIR [Concomitant]
  10. PULMICORT [Concomitant]
  11. ALBUTEROL [Concomitant]

REACTIONS (1)
  - MUSCLE SPASMS [None]
